FAERS Safety Report 5998453-0 (Version None)
Quarter: 2008Q4

REPORT INFORMATION
  Report Type: 
  Country: None (occurrence: None)
  Receive Date: 20081213
  Receipt Date: 20080708
  Transmission Date: 20090506
  Serious: No
  Sender: FDA-Public Use
  Company Number: US-AMGEN-KDL274769

PATIENT
  Sex: Female
  Weight: 88.1 kg

DRUGS (2)
  1. ENBREL [Suspect]
     Indication: RHEUMATOID ARTHRITIS
     Route: 058
     Dates: start: 20071120, end: 20080714
  2. METHOTREXATE [Concomitant]
     Dates: start: 20070101

REACTIONS (6)
  - ARTHRALGIA [None]
  - C-REACTIVE PROTEIN INCREASED [None]
  - INJECTION SITE HAEMATOMA [None]
  - INJECTION SITE URTICARIA [None]
  - RED BLOOD CELL SEDIMENTATION RATE INCREASED [None]
  - THERAPEUTIC RESPONSE DELAYED [None]
